FAERS Safety Report 8193539-7 (Version None)
Quarter: 2012Q1

REPORT INFORMATION
  Report Type: 
  Country: None (occurrence: None)
  Receive Date: 20120308
  Receipt Date: 20120301
  Transmission Date: 20120608
  Serious: Yes (Life-Threatening)
  Sender: FDA-Public Use
  Company Number: DE-ROCHE-1037451

PATIENT
  Sex: Male
  Weight: 77 kg

DRUGS (14)
  1. SIMVASTATIN [Concomitant]
     Route: 048
  2. COTRIM [Concomitant]
  3. MABTHERA [Suspect]
     Indication: CHRONIC LYMPHOCYTIC LEUKAEMIA RECURRENT
     Route: 042
     Dates: start: 20120104
  4. PANTOPRAZOLE [Concomitant]
     Route: 048
  5. BENDAMUSTINE [Concomitant]
     Indication: CHRONIC LYMPHOCYTIC LEUKAEMIA RECURRENT
     Route: 042
     Dates: start: 20120104
  6. TORSEMIDE [Concomitant]
  7. COMBACTAM [Concomitant]
  8. METOPROLOL TARTRATE AND HYDROCHLOROTHIAZIDE [Concomitant]
     Route: 048
  9. OXAZEPAM [Concomitant]
  10. IMIPENEM [Concomitant]
  11. ACYCLOVIR [Concomitant]
  12. ALLOPURINOL [Concomitant]
     Route: 048
  13. RAMIPRIL [Concomitant]
  14. PIPERACILLIN [Concomitant]

REACTIONS (2)
  - FIBRINOLYSIS INCREASED [None]
  - THROMBOCYTOPENIA [None]
